FAERS Safety Report 5190566-9 (Version None)
Quarter: 2006Q4

REPORT INFORMATION
  Report Type: 
  Country: None (occurrence: None)
  Receive Date: 20061222
  Receipt Date: 20061214
  Transmission Date: 20070319
  Serious: Yes (Hospitalization, Other)
  Sender: FDA-Public Use
  Company Number: US-JNJFOC-20061006366

PATIENT
  Sex: Male

DRUGS (16)
  1. INFLIXIMAB [Suspect]
     Indication: RHEUMATOID ARTHRITIS
     Route: 042
  2. ARAVA [Concomitant]
  3. ASPIRIN [Concomitant]
  4. DITROPAN [Concomitant]
  5. HYDROXYCHLOROQUINE SULFATE [Concomitant]
  6. HYTRIN [Concomitant]
  7. METHOTREXATE [Concomitant]
  8. MEVACOR [Concomitant]
  9. NEURONTIN [Concomitant]
  10. PREDNISONE TAB [Concomitant]
  11. PRILOSEC [Concomitant]
  12. PRINIVIL [Concomitant]
  13. TYLENOL [Concomitant]
  14. FOLIC ACID [Concomitant]
  15. ARANESP [Concomitant]
  16. PROPOXYPHENE NAPSYLATE [Concomitant]
     Dosage: DOSAGE 100/650 TWICE DAILY

REACTIONS (5)
  - CONFUSIONAL STATE [None]
  - DEPRESSION [None]
  - ENCEPHALOPATHY [None]
  - NEOPLASM OF APPENDIX [None]
  - PSEUDOMYXOMA PERITONEI [None]
